FAERS Safety Report 23065993 (Version 1)
Quarter: 2023Q4

REPORT INFORMATION
  Report Type: Spontaneous
  Country: US (occurrence: US)
  Receive Date: 20231014
  Receipt Date: 20231014
  Transmission Date: 20240109
  Serious: Yes (Hospitalization, Other)
  Sender: FDA-Public Use
  Company Number: US-CPL-003699

PATIENT
  Age: 71 Year
  Sex: Male

DRUGS (2)
  1. RIVASTIGMINE [Suspect]
     Active Substance: RIVASTIGMINE
     Indication: Dementia with Lewy bodies
     Dosage: AT BEDTIME
  2. QUETIAPINE [Suspect]
     Active Substance: QUETIAPINE
     Indication: Dementia with Lewy bodies
     Dosage: AT BEDTIME, LATER TITRATED DOWN

REACTIONS (3)
  - Hallucination [Unknown]
  - Agitation [Unknown]
  - Paranoia [Unknown]
